FAERS Safety Report 4139613 (Version 1)
Quarter: 2020Q3

REPORT INFORMATION
  Report Type: Spontaneous
  Country: US (occurrence: None)
  Receive Date: 20040504
  Receipt Date: 20040504
  Transmission Date: 20201104
  Serious: Yes (Hospitalization)
  Sender: FDA-Public Use
  Company Number: REL-RIR-117

PATIENT
  Age: 57 Year
  Sex: Male

DRUGS (8)
  1. FUROSEMIDE. [Concomitant]
     Active Substance: FUROSEMIDE
  2. MIDAZOLAM HYDROCHLORIDE. [Suspect]
     Active Substance: MIDAZOLAM HYDROCHLORIDE
  3. PROPOFOL. [Suspect]
     Active Substance: PROPOFOL
     Dosage: 80 MG QD
  4. RYTHMOL [Suspect]
     Active Substance: PROPAFENONE HYDROCHLORIDE
     Indication: ARRHYTHMIA
     Dosage: 300 MG QD PO
     Route: 048
     Dates: start: 20040210
  5. WARFARIN SODIUM. [Suspect]
     Active Substance: WARFARIN SODIUM
  6. METOCLOPRAMIDE. [Concomitant]
     Active Substance: METOCLOPRAMIDE
  7. TEDISAMIL DIHYDROCHLORIDE. [Suspect]
     Active Substance: TEDISAMIL DIHYDROCHLORIDE
     Indication: ATRIAL FIBRILLATION
     Dates: start: 20040209
  8. ATENOLOL. [Suspect]
     Active Substance: ATENOLOL

REACTIONS (3)
  - Hypotension [None]
  - Acute kidney injury [None]
  - Drug ineffective [None]

NARRATIVE: CASE EVENT DATE: 20040210
